FAERS Safety Report 12885558 (Version 1)
Quarter: 2016Q4

REPORT INFORMATION
  Report Type: Spontaneous
  Country: DE (occurrence: DE)
  Receive Date: 20161026
  Receipt Date: 20161026
  Transmission Date: 20170207
  Serious: Yes (Other)
  Sender: FDA-Public Use
  Company Number: DE-GLAXOSMITHKLINE-DE2016GSK157277

PATIENT
  Age: 5 Year
  Sex: Female

DRUGS (6)
  1. FLUDARABINE [Concomitant]
     Active Substance: FLUDARABINE PHOSPHATE
  2. CIDOFOVIR. [Suspect]
     Active Substance: CIDOFOVIR
  3. ACICLOVIR [Suspect]
     Active Substance: ACYCLOVIR
     Indication: PROPHYLAXIS
  4. CYCLOPHOSPHAMIDE. [Concomitant]
     Active Substance: CYCLOPHOSPHAMIDE
  5. MELPHALAN [Concomitant]
     Active Substance: MELPHALAN
  6. ALEMTUZUMAB [Concomitant]
     Active Substance: ALEMTUZUMAB

REACTIONS (11)
  - Mucosal inflammation [Unknown]
  - Nervous system disorder [Unknown]
  - Drug ineffective [Unknown]
  - Herpes simplex [Unknown]
  - Pharyngitis [Unknown]
  - Lymphoproliferative disorder [Unknown]
  - Drug resistance [Unknown]
  - Stomatitis [Unknown]
  - Viraemia [Unknown]
  - Encephalitis [Unknown]
  - Viral load increased [Unknown]
